FAERS Safety Report 6724195-X (Version None)
Quarter: 2010Q2

REPORT INFORMATION
  Report Type: 
  Country: None (occurrence: None)
  Receive Date: 20100513
  Receipt Date: 20100505
  Transmission Date: 20101027
  Serious: Yes (Hospitalization)
  Sender: FDA-Public Use
  Company Number: IT-GILEAD-2010-0027274

PATIENT
  Sex: Male

DRUGS (4)
  1. TRUVADA [Suspect]
     Indication: HIV INFECTION
     Route: 048
     Dates: start: 20050101
  2. TELZIR [Suspect]
     Indication: HIV INFECTION
     Route: 048
     Dates: start: 20050101
  3. EFFORTIL [Concomitant]
     Route: 048
  4. IDROPLURIVIT [Concomitant]
     Route: 048

REACTIONS (2)
  - CRYPTOGENIC CIRRHOSIS [None]
  - WEIGHT DECREASED [None]
